FAERS Safety Report 5307692-3 (Version None)
Quarter: 2007Q2

REPORT INFORMATION
  Report Type: 
  Country: None (occurrence: None)
  Receive Date: 20070419
  Receipt Date: 20070403
  Transmission Date: 20071010
  Serious: Yes (Other)
  Sender: FDA-Public Use
  Company Number: 2007JP001529

PATIENT
  Age: 49 Year
  Sex: Male
  Weight: 65 kg

DRUGS (5)
  1. PROGRAF [Suspect]
     Dosage: SEE IMAGE
  2. POSACONAZOLE [Suspect]
     Dosage: 800 MG, UNKNOWN/D, UNKNOWN
  3. PREDNISOLONE [Concomitant]
  4. CELLCEPT (MYCOPHENOLATE MOFETIL) FORMULATION UNKNOWN [Concomitant]
  5. LAMIVUDINE (LAMIVUDINE) FORMULATION UNKNOWN [Concomitant]

REACTIONS (2)
  - DRUG INTERACTION [None]
  - RENAL IMPAIRMENT [None]
